FAERS Safety Report 10297287 (Version 2)
Quarter: 2014Q3

REPORT INFORMATION
  Report Type: Spontaneous
  Country: ES (occurrence: ES)
  Receive Date: 20140711
  Receipt Date: 20140825
  Transmission Date: 20150326
  Serious: Yes (Other)
  Sender: FDA-Public Use
  Company Number: ES-BRISTOL-MYERS SQUIBB COMPANY-21173836

PATIENT
  Age: 56 Year
  Sex: Male

DRUGS (1)
  1. DASATINIB [Suspect]
     Active Substance: DASATINIB
     Indication: CHRONIC MYELOID LEUKAEMIA
     Dates: start: 20111121, end: 20140702

REACTIONS (4)
  - Dysphagia [Recovering/Resolving]
  - Hyperplasia [Recovering/Resolving]
  - Lymphadenopathy [Recovering/Resolving]
  - Parotid gland enlargement [Recovering/Resolving]

NARRATIVE: CASE EVENT DATE: 201406
